FAERS Safety Report 6619717-3 (Version None)
Quarter: 2010Q1

REPORT INFORMATION
  Report Type: 
  Country: None (occurrence: None)
  Receive Date: 20100309
  Receipt Date: 20100225
  Transmission Date: 20100710
  Serious: Yes (Hospitalization, Other)
  Sender: FDA-Public Use
  Company Number: PHHY2010ES10950

PATIENT
  Age: 61 Year
  Sex: Male

DRUGS (12)
  1. RASILEZ [Suspect]
     Indication: HYPERTENSION
     Dosage: UNK
     Route: 048
     Dates: start: 20090901
  2. DIOVAN [Concomitant]
  3. EUCREAS [Concomitant]
  4. ALLOPURINOL [Concomitant]
  5. ADIRO [Concomitant]
  6. OMEPRAZOL [Concomitant]
  7. OMACOR [Concomitant]
  8. ESCITALOPRAM [Concomitant]
  9. IDALPREM [Concomitant]
  10. EZETROL [Concomitant]
  11. LESCOL [Concomitant]
  12. LOBIVON [Concomitant]

REACTIONS (10)
  - ANAEMIA [None]
  - DRUG RASH WITH EOSINOPHILIA AND SYSTEMIC SYMPTOMS [None]
  - ERYTHEMA [None]
  - HYPERKALAEMIA [None]
  - INFECTION [None]
  - PRURITUS [None]
  - RASH GENERALISED [None]
  - RASH PAPULAR [None]
  - RENAL FAILURE ACUTE [None]
  - SKIN LESION [None]
